FAERS Safety Report 9211098 (Version 2)
Quarter: 2013Q2

REPORT INFORMATION
  Report Type: Report from Study
  Country: JP (occurrence: JP)
  Receive Date: 20130404
  Receipt Date: 20130410
  Transmission Date: 20140414
  Serious: Yes (Hospitalization)
  Sender: FDA-Public Use
  Company Number: JP-AMGEN-JPNCT2013023527

PATIENT
  Age: 21 Year
  Sex: Male
  Weight: 66 kg

DRUGS (11)
  1. DENOSUMAB [Suspect]
     Indication: BONE GIANT CELL TUMOUR
     Dosage: 120 MG, Q4WK
     Route: 058
     Dates: start: 20120524
  2. DENOSUMAB [Suspect]
     Dosage: 120 MG, Q4WK
     Route: 058
     Dates: start: 20120531
  3. DENOSUMAB [Suspect]
     Dosage: 120 MG, Q4WK
     Route: 058
     Dates: start: 20120607
  4. DENOSUMAB [Suspect]
     Dosage: 120 MG, Q4WK
     Route: 058
     Dates: start: 20120618
  5. DENOSUMAB [Suspect]
     Dosage: 120 MG, Q4WK
     Route: 058
     Dates: start: 20120621
  6. DENOSUMAB [Suspect]
     Dosage: 120 MG, Q4WK
     Route: 058
     Dates: start: 20121108
  7. DENOSUMAB [Suspect]
     Dosage: 120 MG, Q4WK
     Route: 058
     Dates: start: 20130131
  8. DENOSUMAB [Suspect]
     Dosage: 120 MG, Q4WK
     Route: 058
     Dates: start: 20130328
  9. CALCICHEW D3 [Concomitant]
     Indication: MINERAL SUPPLEMENTATION
     Route: 048
     Dates: start: 20120524
  10. MINOMYCIN [Concomitant]
     Dosage: 200 MG, UNK
     Dates: start: 20130201
  11. PICIBANIL [Concomitant]
     Dosage: 10 UNK, UNK
     Dates: start: 20130203

REACTIONS (1)
  - Pneumothorax [Recovered/Resolved]
